FAERS Safety Report 8849855 (Version 1)
Quarter: 2012Q4

REPORT INFORMATION
  Report Type: 
  Country: FR (occurrence: FR)
  Receive Date: 20121019
  Receipt Date: 20121019
  Transmission Date: 20130627
  Serious: Yes (Hospitalization)
  Sender: FDA-Public Use
  Company Number: FR-ROCHE-1144029

PATIENT
  Age: 43 Year
  Sex: Male

DRUGS (10)
  1. CELLCEPT [Suspect]
     Indication: IMMUNOSUPPRESSION
     Route: 048
  2. BIPRETERAX [Suspect]
     Indication: HYPERTENSION
     Route: 048
     Dates: start: 20120423, end: 20120601
  3. CERTICAN [Suspect]
     Indication: IMMUNOSUPPRESSION
     Route: 048
  4. NEORAL [Suspect]
     Indication: IMMUNOSUPPRESSION
     Route: 048
  5. BACTRIM FORTE [Concomitant]
  6. DELURSAN [Concomitant]
  7. LASILIX [Concomitant]
  8. CORTANCYL [Concomitant]
  9. EUPRESSYL [Concomitant]
  10. ROVALCYTE [Concomitant]

REACTIONS (5)
  - Angioedema [Recovered/Resolved]
  - Face oedema [Recovered/Resolved]
  - Localised oedema [Recovered/Resolved]
  - Pharyngeal oedema [Recovered/Resolved]
  - Laryngeal oedema [Recovered/Resolved]
